FAERS Safety Report 5388475-5 (Version None)
Quarter: 2007Q3

REPORT INFORMATION
  Report Type: 
  Country: None (occurrence: None)
  Receive Date: 20070716
  Receipt Date: 20070711
  Transmission Date: 20080115
  Serious: Yes (Hospitalization)
  Sender: FDA-Public Use
  Company Number: US-BRISTOL-MYERS SQUIBB COMPANY-13843180

PATIENT
  Age: 75 Year
  Sex: Female
  Weight: 52 kg

DRUGS (9)
  1. ERBITUX [Suspect]
     Indication: LUNG ADENOCARCINOMA
     Route: 042
     Dates: start: 20070502
  2. TAXOL [Suspect]
     Indication: LUNG ADENOCARCINOMA
     Route: 042
     Dates: start: 20070613, end: 20070613
  3. CARBOPLATIN [Suspect]
     Indication: LUNG ADENOCARCINOMA
     Route: 042
     Dates: start: 20070613, end: 20070613
  4. RHUMAB-VEGF [Suspect]
     Indication: LUNG ADENOCARCINOMA
  5. ALBUTEROL [Concomitant]
  6. ALLEGRA [Concomitant]
  7. POTASSIUM CHLORIDE [Concomitant]
  8. SINGULAIR [Concomitant]
  9. SPIRIVA [Concomitant]

REACTIONS (5)
  - HYPOALBUMINAEMIA [None]
  - HYPOMAGNESAEMIA [None]
  - HYPONATRAEMIA [None]
  - MYOCARDIAL ISCHAEMIA [None]
  - PNEUMONIA [None]
